FAERS Safety Report 24985112 (Version 2)
Quarter: 2025Q2

REPORT INFORMATION
  Report Type: Spontaneous
  Country: US (occurrence: US)
  Receive Date: 20250219
  Receipt Date: 20250527
  Transmission Date: 20250717
  Serious: No
  Sender: NOVARTIS
  Company Number: US-002147023-NVSC2025US024888

PATIENT
  Age: 13 Year
  Sex: Female

DRUGS (1)
  1. COSENTYX [Suspect]
     Active Substance: SECUKINUMAB
     Indication: Juvenile idiopathic arthritis
     Dosage: 2 DOSAGE FORM, QMO (2X 150MG) (ABDOMEN)
     Route: 050

REACTIONS (3)
  - Device dispensing error [Unknown]
  - Incorrect dose administered by device [Unknown]
  - Device issue [Unknown]

NARRATIVE: CASE EVENT DATE: 20250210
